FAERS Safety Report 8341886-8 (Version None)
Quarter: 2012Q2

REPORT INFORMATION
  Report Type: 
  Country: None (occurrence: None)
  Receive Date: 20120507
  Receipt Date: 20120502
  Transmission Date: 20120825
  Serious: Yes (Hospitalization)
  Sender: FDA-Public Use
  Company Number: CO-ELI_LILLY_AND_COMPANY-CO201204005582

PATIENT
  Age: 46 Year
  Sex: Male

DRUGS (11)
  1. HUMALOG MIX 75/25 [Suspect]
     Dosage: 45 U, EACH MORNING
     Route: 058
     Dates: start: 20120217, end: 20120304
  2. HUMALOG MIX 75/25 [Suspect]
     Dosage: 20 U, EACH EVENING
     Route: 058
     Dates: start: 20120217, end: 20120304
  3. ACETAMINOPHEN [Concomitant]
     Dosage: UNK
  4. AMLODIPINE [Concomitant]
     Dosage: UNK
  5. METOPROLOL TARTRATE [Concomitant]
     Dosage: UNK
  6. HUMULIN N [Suspect]
     Dosage: 25 U, EACH MORNING
  7. LOVASTATIN [Concomitant]
     Dosage: UNK
  8. HUMULIN N [Suspect]
     Dosage: 16 U, EACH EVENING
  9. FUROSEMIDE [Concomitant]
     Dosage: UNK
  10. HUMULIN N [Suspect]
     Dosage: 20 U, EACH EVENING
  11. OMEPRAZOLE [Concomitant]
     Dosage: UNK

REACTIONS (3)
  - INFARCTION [None]
  - BLOOD GLUCOSE INCREASED [None]
  - BLOOD GLUCOSE DECREASED [None]
